FAERS Safety Report 4564835-7 (Version None)
Quarter: 2005Q1

REPORT INFORMATION
  Report Type: 
  Country: None (occurrence: None)
  Receive Date: 20050128
  Receipt Date: 20050120
  Transmission Date: 20050727
  Serious: Yes (Hospitalization)
  Sender: FDA-Public Use
  Company Number: SE-MERCK-0501SWE00023

PATIENT
  Age: 47 Year
  Sex: Male

DRUGS (2)
  1. VIOXX [Suspect]
     Indication: MYALGIA
     Route: 048
     Dates: start: 20040525, end: 20040604
  2. VIOXX [Suspect]
     Indication: HEADACHE
     Route: 048
     Dates: start: 20040525, end: 20040604

REACTIONS (2)
  - BRAIN STEM INFARCTION [None]
  - CEREBROVASCULAR DISORDER [None]
